FAERS Safety Report 7325793-5 (Version None)
Quarter: 2011Q1

REPORT INFORMATION
  Report Type: 
  Country: None (occurrence: None)
  Receive Date: 20110302
  Receipt Date: 20100811
  Transmission Date: 20110831
  Serious: Yes (Hospitalization, Other)
  Sender: FDA-Public Use
  Company Number: US-BAYER-200938267NA

PATIENT
  Sex: Female
  Weight: 59.091 kg

DRUGS (4)
  1. IBUPROFEN [Concomitant]
     Dosage: OFF AND ON USE SINCE JUNIOR HIGH SCHOOL
  2. YAZ [Suspect]
     Indication: CONTRACEPTION
     Dosage: LAWSUIT ??-JUL-2007 TO ??-NOV-2007
     Route: 048
     Dates: start: 20070816, end: 20071025
  3. NAPROXEN [Concomitant]
     Dosage: OFF AND ON USE SINCE JUNIOR HIGH SCHOOL
  4. ACULAR [Concomitant]
     Dates: start: 20050101

REACTIONS (6)
  - PAIN IN EXTREMITY [None]
  - PAIN [None]
  - VENOUS INSUFFICIENCY [None]
  - GAIT DISTURBANCE [None]
  - DEEP VEIN THROMBOSIS [None]
  - OEDEMA PERIPHERAL [None]
